FAERS Safety Report 18769379 (Version 7)
Quarter: 2023Q2

REPORT INFORMATION
  Report Type: Spontaneous
  Country: US (occurrence: US)
  Receive Date: 20210121
  Receipt Date: 20230404
  Transmission Date: 20230722
  Serious: No
  Sender: FDA-Public Use
  Company Number: US-PFIZER INC-2021040604

PATIENT
  Age: 88 Year
  Sex: Female

DRUGS (3)
  1. IBRANCE [Suspect]
     Active Substance: PALBOCICLIB
     Dosage: 100 MG
  2. IBRANCE [Suspect]
     Active Substance: PALBOCICLIB
     Dosage: 75 MG
     Dates: start: 20210303
  3. IBRANCE [Suspect]
     Active Substance: PALBOCICLIB
     Dosage: 75 MG

REACTIONS (7)
  - White blood cell count decreased [Unknown]
  - Nasopharyngitis [Not Recovered/Not Resolved]
  - Red blood cell count decreased [Unknown]
  - Fatigue [Unknown]
  - COVID-19 [Not Recovered/Not Resolved]
  - Brain fog [Unknown]
  - Headache [Unknown]
